FAERS Safety Report 22308418 (Version 1)
Quarter: 2023Q2

REPORT INFORMATION
  Report Type: Spontaneous
  Country: US (occurrence: None)
  Receive Date: 20230510
  Receipt Date: 20230510
  Transmission Date: 20230722
  Serious: Yes (Other)
  Sender: FDA-Public Use
  Company Number: None

PATIENT
  Sex: Male

DRUGS (1)
  1. ABIRATERONE [Suspect]
     Active Substance: ABIRATERONE
     Dosage: FREQUENCY : DAILY;?
     Route: 048

REACTIONS (7)
  - Fall [None]
  - Gastrooesophageal reflux disease [None]
  - Muscular weakness [None]
  - Dizziness [None]
  - Sleep disorder [None]
  - Prostatic disorder [None]
  - Fatigue [None]
